FAERS Safety Report 4293789-6 (Version None)
Quarter: 2004Q1

REPORT INFORMATION
  Report Type: 
  Country: None (occurrence: None)
  Receive Date: 20040212
  Receipt Date: 20040123
  Transmission Date: 20041129
  Serious: Yes (Hospitalization, Other)
  Sender: FDA-Public Use
  Company Number: WAES 0401USA01873

PATIENT
  Age: 81 Year
  Sex: Female
  Weight: 89 kg

DRUGS (6)
  1. FOSAMAX [Suspect]
     Indication: OSTEOPOROSIS
     Route: 048
     Dates: start: 20020123
  2. CELEBREX [Concomitant]
     Indication: OSTEOARTHRITIS
     Route: 048
     Dates: start: 20011217
  3. LASIX [Concomitant]
     Route: 048
  4. GLUCOTROL XL [Concomitant]
     Indication: DIABETES MELLITUS NON-INSULIN-DEPENDENT
     Route: 048
  5. COZAAR [Concomitant]
     Indication: HYPERTENSION
     Route: 048
  6. TOPROL-XL [Concomitant]
     Indication: HYPERTENSION
     Route: 048

REACTIONS (4)
  - BONE DENSITY DECREASED [None]
  - FALL [None]
  - HIP FRACTURE [None]
  - MEDICAL DEVICE COMPLICATION [None]
